FAERS Safety Report 11250995 (Version 1)
Quarter: 2015Q3

REPORT INFORMATION
  Report Type: Spontaneous
  Country: US (occurrence: US)
  Receive Date: 20150708
  Receipt Date: 20150708
  Transmission Date: 20151125
  Serious: No
  Sender: FDA-Public Use
  Company Number: US-ELI_LILLY_AND_COMPANY-US201107003960

PATIENT
  Age: 42 Year
  Sex: Male

DRUGS (1)
  1. PROZAC [Suspect]
     Active Substance: FLUOXETINE HYDROCHLORIDE
     Indication: DEPRESSION
     Dosage: 20 MG, QD
     Dates: start: 20110708

REACTIONS (5)
  - Anxiety [Unknown]
  - Nervousness [Unknown]
  - Feeling abnormal [Unknown]
  - Insomnia [Unknown]
  - Eye movement disorder [Unknown]

NARRATIVE: CASE EVENT DATE: 20110708
